FAERS Safety Report 5932387-2 (Version None)
Quarter: 2008Q4

REPORT INFORMATION
  Report Type: 
  Country: None (occurrence: None)
  Receive Date: 20081027
  Receipt Date: 20081027
  Transmission Date: 20090506
  Serious: Yes (Other)
  Sender: FDA-Public Use
  Company Number: None

PATIENT
  Age: 78 Year
  Sex: Male
  Weight: 106.5953 kg

DRUGS (2)
  1. TRICOR [Suspect]
     Indication: BLOOD TRIGLYCERIDES INCREASED
     Dosage: ONE TABLET ONE PER DAY PO
     Route: 048
     Dates: start: 20080410, end: 20081025
  2. RANEXA [Suspect]
     Indication: PROPHYLAXIS
     Dosage: ONE TABLET TWO PER DAY PO
     Route: 048
     Dates: start: 20080410, end: 20081025

REACTIONS (3)
  - CONSTIPATION [None]
  - PAIN [None]
  - PAINFUL DEFAECATION [None]
